FAERS Safety Report 6013690-7 (Version None)
Quarter: 2008Q4

REPORT INFORMATION
  Report Type: 
  Country: None (occurrence: None)
  Receive Date: 20081219
  Receipt Date: 20081212
  Transmission Date: 20090506
  Serious: Yes (Hospitalization)
  Sender: FDA-Public Use
  Company Number: A0740984A

PATIENT
  Age: 53 Year
  Sex: Male

DRUGS (15)
  1. EPZICOM [Suspect]
     Indication: HIV INFECTION
     Dosage: 1TAB PER DAY
     Route: 048
  2. MARAVIROC [Suspect]
     Indication: HIV INFECTION
     Dosage: 600MG TWICE PER DAY
     Route: 048
     Dates: start: 20080312
  3. RALTEGRAVIR [Suspect]
     Indication: HIV INFECTION
     Dosage: 400MG TWICE PER DAY
     Route: 048
     Dates: start: 20080312
  4. ETRAVIRINE [Suspect]
     Indication: HIV INFECTION
     Dosage: 200MG TWICE PER DAY
     Route: 048
  5. TENOFOVIR [Suspect]
     Indication: HIV INFECTION
     Dosage: 300MG PER DAY
     Route: 048
  6. LYRICA [Concomitant]
     Route: 048
  7. SOMAC [Concomitant]
     Route: 048
  8. FLUCONAZOLE [Concomitant]
     Route: 048
     Dates: start: 20080331
  9. AZITHROMYCIN [Concomitant]
     Route: 048
     Dates: start: 20070101
  10. DOCUSATE [Concomitant]
     Route: 048
  11. ESOMEPRAZOLE MAGNESIUM [Concomitant]
     Route: 048
  12. PRAZSOIN HCL [Concomitant]
  13. VALPROATE SODIUM [Concomitant]
  14. SOTALOL HCL [Concomitant]
     Route: 048
  15. VALACYCLOVIR [Concomitant]
     Route: 048

REACTIONS (1)
  - POLYARTHRITIS [None]
